FAERS Safety Report 5765209-3 (Version None)
Quarter: 2008Q2

REPORT INFORMATION
  Report Type: 
  Country: None (occurrence: None)
  Receive Date: 20080610
  Receipt Date: 20080610
  Transmission Date: 20081010
  Serious: Yes (Hospitalization)
  Sender: FDA-Public Use
  Company Number: None

PATIENT
  Sex: Female
  Weight: 52.4358 kg

DRUGS (8)
  1. TARCEVA [Suspect]
     Indication: NON-SMALL CELL LUNG CANCER
     Dosage: 100MG DAILY PO
     Route: 048
     Dates: start: 20080416, end: 20080605
  2. SYNTHROID [Concomitant]
  3. LIPITOR [Concomitant]
  4. POTASSIUM CHLORIDE [Concomitant]
  5. HYDROCHLOROTHIAZIDE [Concomitant]
  6. MAGIC MOUTHWASH [Concomitant]
  7. ZOFRAN [Concomitant]
  8. PERCOSET [Concomitant]

REACTIONS (1)
  - PNEUMONIA [None]
